FAERS Safety Report 15859552 (Version 1)
Quarter: 2019Q1

REPORT INFORMATION
  Report Type: Spontaneous
  Country: US (occurrence: US)
  Receive Date: 20190123
  Receipt Date: 20190123
  Transmission Date: 20190417
  Serious: Yes (Other)
  Sender: FDA-Public Use
  Company Number: None

PATIENT
  Age: 63 Year
  Sex: Male

DRUGS (3)
  1. SIMVASTATIN. [Concomitant]
     Active Substance: SIMVASTATIN
     Dates: start: 20170808
  2. METOPROLOL SUCC [Concomitant]
     Active Substance: METOPROLOL SUCCINATE
     Dates: start: 20170808
  3. CLOPIDOGREL [Suspect]
     Active Substance: CLOPIDOGREL BISULFATE
     Indication: PRODUCT USED FOR UNKNOWN INDICATION
     Route: 048
     Dates: start: 20181128, end: 20190123

REACTIONS (2)
  - Chemical burn [None]
  - Dermatitis contact [None]

NARRATIVE: CASE EVENT DATE: 20181203
